FAERS Safety Report 6184809-2 (Version None)
Quarter: 2009Q2

REPORT INFORMATION
  Report Type: 
  Country: None (occurrence: None)
  Receive Date: 20090508
  Receipt Date: 20090427
  Transmission Date: 20091009
  Serious: Yes (Hospitalization)
  Sender: FDA-Public Use
  Company Number: IT-ELI_LILLY_AND_COMPANY-IT200904006640

PATIENT
  Age: 49 Year
  Sex: Male

DRUGS (2)
  1. CYMBALTA [Suspect]
     Indication: DEPRESSION
     Dosage: 60 MG, DAILY (1/D)
     Route: 065
     Dates: start: 20060801
  2. TOPIRAMATE [Concomitant]
     Dosage: 200 MG, DAILY (1/D)
     Route: 065
     Dates: start: 20060201

REACTIONS (9)
  - AGITATION [None]
  - ANOREXIA [None]
  - CHILLS [None]
  - DYSKINESIA [None]
  - FAECAL INCONTINENCE [None]
  - GRAND MAL CONVULSION [None]
  - HYPERHIDROSIS [None]
  - SPEECH DISORDER [None]
  - URINARY INCONTINENCE [None]
